FAERS Safety Report 20161897 (Version 3)
Quarter: 2025Q2

REPORT INFORMATION
  Report Type: Report from Study
  Country: FR (occurrence: FR)
  Receive Date: 20211208
  Receipt Date: 20250505
  Transmission Date: 20250716
  Serious: Yes (Hospitalization, Other)
  Sender: TAKEDA
  Company Number: FR-TAKEDA-FR201811169

PATIENT
  Age: 85 Year
  Sex: Male

DRUGS (23)
  1. TEDUGLUTIDE [Suspect]
     Active Substance: TEDUGLUTIDE
     Indication: Short-bowel syndrome
     Dosage: 4.6 MILLIGRAM, QD
     Dates: start: 20171027, end: 20171127
  2. TEDUGLUTIDE [Suspect]
     Active Substance: TEDUGLUTIDE
     Dosage: 2.3 MILLIGRAM, QD
     Dates: start: 20171128, end: 20180211
  3. TEDUGLUTIDE [Suspect]
     Active Substance: TEDUGLUTIDE
     Dosage: 4.6 MILLIGRAM, QD
     Dates: start: 20180212, end: 20180214
  4. TEDUGLUTIDE [Suspect]
     Active Substance: TEDUGLUTIDE
     Dosage: 4.4 MILLIGRAM, QD
     Dates: start: 20180215, end: 20180408
  5. TEDUGLUTIDE [Suspect]
     Active Substance: TEDUGLUTIDE
     Dosage: 4.2 MILLIGRAM, QD
     Dates: start: 20180409
  6. SELENIUM [Concomitant]
     Active Substance: SELENIUM
     Indication: Prophylaxis
     Dosage: 1 DOSAGE FORM, QD
     Dates: start: 201807
  7. ZINC GLUCONATE [Concomitant]
     Active Substance: ZINC GLUCONATE
     Indication: Prophylaxis
     Dosage: 30 MILLIGRAM, QD
     Dates: start: 201807
  8. WARFARIN SODIUM [Concomitant]
     Active Substance: WARFARIN SODIUM
     Indication: Anticoagulant therapy
     Dosage: 3.50 MILLIGRAM, QD
     Dates: start: 201804
  9. POTASSIUM CHLORIDE [Concomitant]
     Active Substance: POTASSIUM CHLORIDE
     Indication: Prophylaxis
  10. BISOPROLOL [Concomitant]
     Active Substance: BISOPROLOL
     Indication: Cardiac disorder
     Dosage: 1.25 MILLIGRAM, QD
  11. CANDESARTAN [Concomitant]
     Active Substance: CANDESARTAN
     Indication: Cardiac disorder
     Dosage: 8.00 MILLIGRAM, BID
  12. ESIDREX [Concomitant]
     Active Substance: HYDROCHLOROTHIAZIDE
     Indication: Cardiac disorder
     Dosage: 12.50 MILLIGRAM, QD
  13. KARDEGIC [Concomitant]
     Active Substance: ASPIRIN DL-LYSINE
     Indication: Cardiac disorder
     Dosage: 160.00 MILLIGRAM, QD
  14. ESOMEPRAZOLE [Concomitant]
     Active Substance: ESOMEPRAZOLE
     Indication: Gastrooesophageal reflux disease
     Dosage: 40.00 MILLIGRAM, BID
  15. LOPERAMIDE HYDROCHLORIDE [Concomitant]
     Active Substance: LOPERAMIDE HYDROCHLORIDE
     Indication: Prophylaxis against gastrointestinal ulcer
     Dosage: 3.00 INTERNATIONAL UNIT, TID
  16. METOCLOPRAMIDE [Concomitant]
     Active Substance: METOCLOPRAMIDE
     Indication: Gastrooesophageal reflux prophylaxis
  17. SERETIDE [Concomitant]
     Active Substance: FLUTICASONE PROPIONATE\SALMETEROL XINAFOATE
     Indication: Respiratory disorder prophylaxis
     Dosage: UNK UNK, BID
  18. TERBUTALINE SULFATE [Concomitant]
     Active Substance: TERBUTALINE SULFATE
     Indication: Respiratory disorder prophylaxis
     Dosage: UNK UNK, TID
  19. TINZAPARIN SODIUM [Concomitant]
     Active Substance: TINZAPARIN SODIUM
     Indication: Cardiac disorder
     Dosage: 0.90 MILLILITER, QD
     Dates: end: 201804
  20. .ALPHA.-TOCOPHEROL ACETATE [Concomitant]
     Active Substance: .ALPHA.-TOCOPHEROL ACETATE
     Indication: Prophylaxis
     Dosage: 500.00 MILLIGRAM, BID
  21. VITAMIN B12 [Concomitant]
     Active Substance: CYANOCOBALAMIN
     Indication: Prophylaxis
  22. ALFACALCIDOL [Concomitant]
     Active Substance: ALFACALCIDOL
     Indication: Prophylaxis
     Dosage: 1.00 MICROGRAM, QD
  23. MAGNESIUM [Concomitant]
     Active Substance: MAGNESIUM
     Indication: Prophylaxis
     Dosage: UNK UNK, TID

REACTIONS (2)
  - Renal failure [Recovered/Resolved]
  - Hypomagnesaemia [Not Recovered/Not Resolved]

NARRATIVE: CASE EVENT DATE: 20180222
